FAERS Safety Report 8876394 (Version 2)
Quarter: 2013Q2

REPORT INFORMATION
  Report Type: Spontaneous
  Country: US (occurrence: None)
  Receive Date: 20120426
  Receipt Date: 20130107
  Transmission Date: 20140414
  Serious: Yes (Other)
  Sender: FDA-Public Use
  Company Number: PHEH2012US004614

PATIENT
  Age: 56 Year
  Sex: Female
  Weight: 81.6 kg

DRUGS (1)
  1. GILENYA [Suspect]
     Indication: MULTIPLE SCLEROSIS
     Route: 048
     Dates: start: 20120222

REACTIONS (7)
  - Dizziness [None]
  - Back pain [None]
  - Asthenia [None]
  - Feeling abnormal [None]
  - Neck pain [None]
  - Somnolence [None]
  - Fatigue [None]
